FAERS Safety Report 11795888 (Version 1)
Quarter: 2015Q4

REPORT INFORMATION
  Report Type: Spontaneous
  Country: GB (occurrence: GB)
  Receive Date: 20151203
  Receipt Date: 20151203
  Transmission Date: 20160305
  Serious: Yes (Other)
  Sender: FDA-Public Use
  Company Number: GB-009507513-1511GBR015426

PATIENT
  Age: 24 Year
  Sex: Female
  Weight: 63.5 kg

DRUGS (1)
  1. NEXPLANON [Suspect]
     Active Substance: ETONOGESTREL
     Indication: CONTRACEPTIVE IMPLANT
     Dates: start: 201210, end: 201510

REACTIONS (4)
  - Product substitution issue [Unknown]
  - Coital bleeding [Recovered/Resolved]
  - Metrorrhagia [Recovered/Resolved]
  - Orgasm abnormal [Recovered/Resolved]

NARRATIVE: CASE EVENT DATE: 201410
